FAERS Safety Report 13073807 (Version 1)
Quarter: 2016Q4

REPORT INFORMATION
  Report Type: Spontaneous
  Country: US (occurrence: US)
  Receive Date: 20161229
  Receipt Date: 20161229
  Transmission Date: 20170207
  Serious: Yes (Other)
  Sender: FDA-Public Use
  Company Number: US-009507513-1612USA014536

PATIENT
  Age: 72 Year
  Sex: Female

DRUGS (2)
  1. NOXAFIL [Suspect]
     Active Substance: POSACONAZOLE
     Indication: PNEUMONIA FUNGAL
     Dosage: 300 MG BY MOUTH DAILY
     Route: 048
  2. DIGOXIN. [Interacting]
     Active Substance: DIGOXIN
     Dosage: 0.25 MG BY MOUTH MONDAY THROUGH FRIDAY
     Route: 048

REACTIONS (3)
  - Ventricular tachycardia [Recovered/Resolved]
  - Drug interaction [Unknown]
  - Atrial fibrillation [Unknown]
